FAERS Safety Report 8192843-6 (Version None)
Quarter: 2012Q1

REPORT INFORMATION
  Report Type: 
  Country: None (occurrence: None)
  Receive Date: 20120308
  Receipt Date: 20120228
  Transmission Date: 20120608
  Serious: Yes (Other)
  Sender: FDA-Public Use
  Company Number: CA-JNJFOC-20120214614

PATIENT
  Sex: Male
  Weight: 82 kg

DRUGS (9)
  1. IMURAN [Concomitant]
     Route: 048
  2. ALL OTHER THERAPEUTICS [Concomitant]
     Route: 065
  3. GABAPENTIN [Concomitant]
     Route: 065
  4. REMICADE [Suspect]
     Indication: CROHN'S DISEASE
     Route: 042
  5. METFORMIN HCL [Concomitant]
     Route: 065
  6. ESCITALOPRAM [Concomitant]
     Route: 065
  7. DITROPAN XL [Concomitant]
     Route: 065
  8. OXYBUTYNIN [Concomitant]
     Route: 065
  9. RISPERIDONE [Concomitant]
     Route: 065

REACTIONS (1)
  - ROAD TRAFFIC ACCIDENT [None]
